FAERS Safety Report 5425063-6 (Version None)
Quarter: 2007Q3

REPORT INFORMATION
  Report Type: 
  Country: None (occurrence: None)
  Receive Date: 20070731
  Receipt Date: 20070529
  Transmission Date: 20080115
  Serious: No
  Sender: FDA-Public Use
  Company Number: 2007PV030926

PATIENT
  Age: 66 Year
  Sex: Female

DRUGS (11)
  1. EXENATIDE(EXENATIDE) PEN,DISPOSABLE [Suspect]
     Indication: TYPE 2 DIABETES MELLITUS
     Dosage: 5 UG, 2/D, SUBCUTANEOUS
     Route: 058
     Dates: start: 20070301, end: 20070302
  2. STRATTERA [Concomitant]
  3. GLIPIZIDE [Concomitant]
  4. AVANDIA [Concomitant]
  5. CLARITIN [Concomitant]
  6. SINGULAIR [Concomitant]
  7. SEREVENT [Concomitant]
  8. NASACORT [Concomitant]
  9. ALBUTEROL [Concomitant]
  10. ZETIA [Concomitant]
  11. THYROID TAB [Concomitant]

REACTIONS (5)
  - ASTHMA [None]
  - BRONCHIAL OEDEMA [None]
  - FATIGUE [None]
  - NASAL CONGESTION [None]
  - SINUS CONGESTION [None]
